FAERS Safety Report 4283802-4 (Version None)
Quarter: 2004Q1

REPORT INFORMATION
  Report Type: 
  Country: None (occurrence: None)
  Receive Date: 20040202
  Receipt Date: 20031203
  Transmission Date: 20041129
  Serious: Yes (Death, Hospitalization)
  Sender: FDA-Public Use
  Company Number: DE-BRISTOL-MYERS SQUIBB COMPANY-12447769

PATIENT
  Age: 80 Year
  Sex: Male

DRUGS (2)
  1. MITOMYCIN [Suspect]
     Indication: BLADDER CANCER
     Route: 043
     Dates: start: 20001108, end: 20011004
  2. 5-AMINOLAEVULINIC ACID [Suspect]
     Indication: BLADDER CANCER
     Route: 043
     Dates: start: 20000914, end: 20011017

REACTIONS (4)
  - CYSTITIS [None]
  - DEATH [None]
  - HYDRONEPHROSIS [None]
  - TUBERCULOSIS OF GENITOURINARY SYSTEM [None]
